FAERS Safety Report 23595793 (Version 1)
Quarter: 2024Q1

REPORT INFORMATION
  Report Type: Spontaneous
  Country: US (occurrence: None)
  Receive Date: 20240304
  Receipt Date: 20240304
  Transmission Date: 20240410
  Serious: Yes (Disabling, Other)
  Sender: FDA-Public Use
  Company Number: None

PATIENT
  Age: 60 Year
  Sex: Female
  Weight: 81.9 kg

DRUGS (15)
  1. ISONIAZID [Suspect]
     Active Substance: ISONIAZID
     Indication: Exposure to communicable disease
     Dosage: 1 CAPSULE ONCE A WEEK HD ORAL?
     Route: 048
     Dates: start: 20221213, end: 20230222
  2. RIFAPENTINE [Suspect]
     Active Substance: RIFAPENTINE
     Indication: Tuberculosis
     Dosage: 1 TABLET ONCE A WEEK ORAL?
     Route: 048
     Dates: start: 20221213, end: 20230222
  3. VITAMIN B6 [Suspect]
     Active Substance: PYRIDOXINE HYDROCHLORIDE
  4. CYMBALTA [Concomitant]
     Active Substance: DULOXETINE HYDROCHLORIDE
  5. TRIAMCINOLONE ACETONIDE [Concomitant]
     Active Substance: TRIAMCINOLONE ACETONIDE
  6. TOPIRAMATE [Concomitant]
     Active Substance: TOPIRAMATE
  7. PROTONIX [Concomitant]
     Active Substance: PANTOPRAZOLE SODIUM
  8. Xyral [Concomitant]
  9. NORVASC [Concomitant]
     Active Substance: AMLODIPINE BESYLATE
  10. DICYCLOMINE [Concomitant]
     Active Substance: DICYCLOMINE HYDROCHLORIDE
  11. NORCO [Concomitant]
     Active Substance: ACETAMINOPHEN\HYDROCODONE BITARTRATE
  12. XANAX [Concomitant]
     Active Substance: ALPRAZOLAM
  13. VITAMINS [Concomitant]
     Active Substance: VITAMINS
  14. VITAMIN B COMPLEX [Concomitant]
     Active Substance: CYANOCOBALAMIN\DEXPANTHENOL\NIACINAMIDE\PYRIDOXINE HYDROCHLORIDE\RIBOFLAVIN 5^-PHOSPHATE SODIUM\THIA
  15. VITAMIN B12 [Concomitant]
     Active Substance: CYANOCOBALAMIN

REACTIONS (26)
  - Malaise [None]
  - Dysstasia [None]
  - Fall [None]
  - Dizziness [None]
  - Paraesthesia [None]
  - Hypoaesthesia [None]
  - Hypoaesthesia [None]
  - Impaired work ability [None]
  - Loss of employment [None]
  - Asthenia [None]
  - Fatigue [None]
  - Pain [None]
  - Balance disorder [None]
  - Blood pressure increased [None]
  - Loss of personal independence in daily activities [None]
  - Depression [None]
  - Bedridden [None]
  - Neurodermatitis [None]
  - Skin ulcer [None]
  - Oedema peripheral [None]
  - Pruritus [None]
  - Back pain [None]
  - Polyneuropathy [None]
  - Decreased vibratory sense [None]
  - Product communication issue [None]
  - Feeling abnormal [None]

NARRATIVE: CASE EVENT DATE: 20221213
